FAERS Safety Report 4339412-3 (Version None)
Quarter: 2004Q2

REPORT INFORMATION
  Report Type: 
  Country: None (occurrence: None)
  Receive Date: 20040415
  Receipt Date: 20031110
  Transmission Date: 20050107
  Serious: Yes (Life-Threatening, Hospitalization, Disabling, Other)
  Sender: FDA-Public Use
  Company Number: PHNU2003DE04050

PATIENT
  Age: 60 Year
  Sex: Female

DRUGS (1)
  1. LAMISIL [Suspect]
     Indication: ONYCHOMYCOSIS
     Dosage: 250 MG, QD
     Route: 048
     Dates: start: 20030610, end: 20030920

REACTIONS (20)
  - ALPHA 2 GLOBULIN INCREASED [None]
  - ANTINUCLEAR ANTIBODY POSITIVE [None]
  - BLOOD ALBUMIN DECREASED [None]
  - CIRCULATORY COLLAPSE [None]
  - CUTANEOUS LUPUS ERYTHEMATOSUS [None]
  - DEPRESSED MOOD [None]
  - DERMATITIS EXFOLIATIVE [None]
  - DIZZINESS [None]
  - ECZEMA [None]
  - MENTAL DISORDER [None]
  - PAIN OF SKIN [None]
  - PRURITUS [None]
  - RASH [None]
  - RASH ERYTHEMATOUS [None]
  - RASH GENERALISED [None]
  - RASH MACULAR [None]
  - RHEUMATOID FACTOR INCREASED [None]
  - SCAR [None]
  - SKIN BLEEDING [None]
  - VOMITING [None]
